FAERS Safety Report 14580957 (Version 6)
Quarter: 2019Q1

REPORT INFORMATION
  Report Type: Report from Study
  Country: NL (occurrence: NL)
  Receive Date: 20180228
  Receipt Date: 20190227
  Transmission Date: 20190417
  Serious: Yes (Hospitalization)
  Sender: FDA-Public Use
  Company Number: NL-ROCHE-2069268

PATIENT
  Age: 62 Year
  Sex: Male
  Weight: 72.5 kg

DRUGS (13)
  1. VENETOCLAX. [Suspect]
     Active Substance: VENETOCLAX
     Indication: CHRONIC LYMPHOCYTIC LEUKAEMIA
     Dosage: MOST RECENT DOSE PRIOR TO RESPIRATORY TRACT INFECTION: 30/JAN/2018 (400 MG)?MOST RECENT DOSE PRIOR T
     Route: 048
     Dates: start: 20171017, end: 20180401
  2. COTRIMOXAZOL [Concomitant]
     Active Substance: SULFAMETHOXAZOLE\TRIMETHOPRIM
     Indication: PNEUMONIA
     Route: 048
     Dates: start: 20170926
  3. NEBUSAL [Concomitant]
     Active Substance: SODIUM CHLORIDE
     Route: 050
     Dates: start: 20180730
  4. COTRIMOXAZOL [Concomitant]
     Active Substance: SULFAMETHOXAZOLE\TRIMETHOPRIM
     Route: 048
     Dates: start: 20180313
  5. DOXYCYCLINE. [Concomitant]
     Active Substance: DOXYCYCLINE
     Route: 048
     Dates: start: 20180903
  6. VALACICLOVIR [Concomitant]
     Active Substance: VALACYCLOVIR HYDROCHLORIDE
     Indication: PNEUMONIA
     Route: 048
     Dates: start: 20170826
  7. ALVESCO [Concomitant]
     Active Substance: CICLESONIDE
     Route: 050
     Dates: start: 20180617
  8. PANTOPRAZOL [Concomitant]
     Active Substance: PANTOPRAZOLE SODIUM
     Route: 048
     Dates: start: 20170826
  9. CETOMACROGOL [Concomitant]
     Active Substance: COSMETICS
     Dosage: CREME
     Route: 065
  10. VALACICLOVIR [Concomitant]
     Active Substance: VALACYCLOVIR HYDROCHLORIDE
     Route: 048
     Dates: start: 20180313
  11. AVAMYS [Concomitant]
     Active Substance: FLUTICASONE FUROATE
     Route: 050
     Dates: start: 20180618
  12. OBINUTUZUMAB. [Suspect]
     Active Substance: OBINUTUZUMAB
     Indication: CHRONIC LYMPHOCYTIC LEUKAEMIA
     Dosage: CYCLE 1: 100 MG, D1; 900 MG, D1(2); 1000 MG, D8+15, Q28D (AS PER PROTOCOL)?LAST DOSE 1000 MG PRIOR T
     Route: 042
     Dates: start: 20170926
  13. IPRAMOL [Concomitant]
     Active Substance: ALBUTEROL SULFATE\IPRATROPIUM BROMIDE
     Route: 050
     Dates: start: 20180418

REACTIONS (4)
  - Respiratory tract infection [Recovered/Resolved with Sequelae]
  - Sinus operation [Recovered/Resolved]
  - Pneumonia [Recovered/Resolved with Sequelae]
  - Pneumonia [Recovered/Resolved]

NARRATIVE: CASE EVENT DATE: 20180130
